FAERS Safety Report 20720302 (Version 15)
Quarter: 2024Q1

REPORT INFORMATION
  Report Type: Report from Study
  Country: DE (occurrence: DE)
  Receive Date: 20220418
  Receipt Date: 20240209
  Transmission Date: 20240410
  Serious: Yes (Hospitalization)
  Sender: FDA-Public Use
  Company Number: DE-SA-SAC20220412000231

PATIENT
  Age: 76 Year
  Sex: Female
  Weight: 63 kg

DRUGS (34)
  1. ISATUXIMAB [Suspect]
     Active Substance: ISATUXIMAB
     Indication: Plasma cell myeloma refractory
     Dosage: 630 MG, QW
     Dates: start: 20220124, end: 20220215
  2. ISATUXIMAB [Suspect]
     Active Substance: ISATUXIMAB
     Dosage: 630 MG, BIW
     Dates: start: 20220228, end: 20220321
  3. ISATUXIMAB [Suspect]
     Active Substance: ISATUXIMAB
     Dosage: 630 MG, BIW
     Dates: start: 20220404, end: 20220404
  4. ISATUXIMAB [Suspect]
     Active Substance: ISATUXIMAB
     Dosage: 630 MG, BIW
     Dates: start: 20220420, end: 20220420
  5. ISATUXIMAB [Suspect]
     Active Substance: ISATUXIMAB
     Dosage: 630 MG, BIW (INTERRUPTED)
     Dates: start: 20220504, end: 20220504
  6. ISATUXIMAB [Suspect]
     Active Substance: ISATUXIMAB
     Dosage: 630 MG, BIW
     Dates: start: 20220518, end: 20220518
  7. ISATUXIMAB [Suspect]
     Active Substance: ISATUXIMAB
     Dosage: 630 MG, BIW
     Dates: start: 20220601, end: 20220601
  8. ISATUXIMAB [Suspect]
     Active Substance: ISATUXIMAB
     Dosage: 630 MG, BIW
     Dates: start: 20220704, end: 20220704
  9. ISATUXIMAB [Suspect]
     Active Substance: ISATUXIMAB
     Dosage: 630 MG, BIW
     Dates: start: 20220801, end: 20220801
  10. DEXAMETHASONE [Suspect]
     Active Substance: DEXAMETHASONE
     Indication: Plasma cell myeloma refractory
     Dosage: 20 MG, QW (WEEKLY FOR 2 CONSECUTIVE DAYS)
     Dates: start: 20220124, end: 20220216
  11. DEXAMETHASONE [Suspect]
     Active Substance: DEXAMETHASONE
     Dosage: 20 MG, QW (FOR TWO CONSECUTIVE DAYS)
     Dates: start: 20220228, end: 20220322
  12. DEXAMETHASONE [Suspect]
     Active Substance: DEXAMETHASONE
     Dosage: 20 MG, QW (INTERRUPTED) (WEEKLY FOR 2 CONSECUTIVE DAYS)
     Dates: start: 20220404, end: 20220404
  13. DEXAMETHASONE [Suspect]
     Active Substance: DEXAMETHASONE
     Dosage: 20 MG, QW (FOR TWO CONSECUTIVE DAYS)
     Dates: start: 20220420, end: 20220421
  14. DEXAMETHASONE [Suspect]
     Active Substance: DEXAMETHASONE
     Dosage: 20 MG, QW (INTERRUPTED) (WEEKLY FOR 2 CONSECUTIVE DAYS)
     Dates: start: 20220504, end: 20220505
  15. DEXAMETHASONE [Suspect]
     Active Substance: DEXAMETHASONE
     Dosage: 20 MG, QW (WEEKLY FOR 2 CONSECUTIVE DAYS)
     Dates: start: 20220518, end: 20220519
  16. DEXAMETHASONE [Suspect]
     Active Substance: DEXAMETHASONE
     Dosage: 20 MG, QW (WEEKLY FOR 2 CONSECUTIVE DAYS)
     Dates: start: 20220601, end: 20220621
  17. DEXAMETHASONE [Suspect]
     Active Substance: DEXAMETHASONE
     Dosage: 20 MG, QW (WEEKLY FOR 2 CONSECUTIVE DAYS)
     Dates: start: 20220704, end: 20220705
  18. DEXAMETHASONE [Suspect]
     Active Substance: DEXAMETHASONE
     Dosage: 20 MG, QW (WEEKLY FOR 2 CONSECUTIVE DAYS)
     Dates: start: 20220801, end: 20220802
  19. CARFILZOMIB [Suspect]
     Active Substance: CARFILZOMIB
     Indication: Plasma cell myeloma refractory
     Dosage: 35 MG, QW
     Dates: start: 20220124, end: 20220216
  20. CARFILZOMIB [Suspect]
     Active Substance: CARFILZOMIB
     Dosage: 35 MG PER CYCLE (WEEKLY FOR 2 CONSECUTIVE DAYS)
     Dates: start: 20220228, end: 20220322
  21. CARFILZOMIB [Suspect]
     Active Substance: CARFILZOMIB
     Dosage: 99 MG, QW (INTERRUPTED)
     Dates: start: 20220404, end: 20220404
  22. CARFILZOMIB [Suspect]
     Active Substance: CARFILZOMIB
     Dosage: 99 MG, QW (WEEKLY FOR 2 CONSECUTIVE DAYS)
     Dates: start: 20220420, end: 20220421
  23. CARFILZOMIB [Suspect]
     Active Substance: CARFILZOMIB
     Dosage: 99 MG, QW (INTERRUPTED)
     Dates: start: 20220504, end: 20220504
  24. CARFILZOMIB [Suspect]
     Active Substance: CARFILZOMIB
     Dosage: 99 MG, QW
     Dates: start: 20220518, end: 20220519
  25. CARFILZOMIB [Suspect]
     Active Substance: CARFILZOMIB
     Dosage: 99 MG, QW
     Dates: start: 20220704, end: 20220705
  26. CARFILZOMIB [Suspect]
     Active Substance: CARFILZOMIB
     Dosage: 99 MG, QW
     Dates: start: 20220801, end: 20220802
  27. ASPIRIN [Concomitant]
     Active Substance: ASPIRIN
     Indication: Hypertonia
     Dosage: UNK
     Dates: start: 2021, end: 20220510
  28. AMPHOTERICIN B [Concomitant]
     Active Substance: AMPHOTERICIN B
     Dosage: UNK
     Dates: start: 2021
  29. LEVOFLOXACIN [Concomitant]
     Active Substance: LEVOFLOXACIN
     Dosage: UNK
     Dates: start: 20220711, end: 20220712
  30. PASPERTIN [METOCLOPRAMIDE;POLIDOCANOL] [Concomitant]
     Indication: Antiemetic supportive care
     Dosage: UNK
     Dates: start: 2021
  31. OCTAGAM IMMUNE GLOBULIN (HUMAN) [Concomitant]
     Active Substance: HUMAN IMMUNOGLOBULIN G
     Indication: Immunodeficiency
     Dosage: UNK
     Dates: start: 20181219, end: 20210114
  32. POLYETHYLENE GLYCOL 4000 [Concomitant]
     Active Substance: POLYETHYLENE GLYCOL 4000
     Dosage: UNK
     Dates: start: 2021
  33. LORAZEPAM [Concomitant]
     Active Substance: LORAZEPAM
     Dosage: UNK
     Dates: start: 20220817
  34. METAMIZOLE SODIUM [Concomitant]
     Active Substance: METAMIZOLE SODIUM
     Dosage: UNK
     Dates: start: 20220817

REACTIONS (6)
  - Pyrexia [Recovered/Resolved]
  - Thrombocytopenia [Recovered/Resolved]
  - Secondary immunodeficiency [Not Recovered/Not Resolved]
  - Anaemia [Recovered/Resolved]
  - Polyneuropathy [Not Recovered/Not Resolved]
  - Leukopenia [Recovered/Resolved]

NARRATIVE: CASE EVENT DATE: 20220221
